FAERS Safety Report 12448899 (Version 2)
Quarter: 2016Q3

REPORT INFORMATION
  Report Type: Spontaneous
  Country: US (occurrence: US)
  Receive Date: 20160608
  Receipt Date: 20160831
  Transmission Date: 20161109
  Serious: Yes (Other)
  Sender: FDA-Public Use
  Company Number: US-CELGENEUS-USA-2016061013

PATIENT
  Age: 75 Year
  Sex: Female

DRUGS (18)
  1. POMALYST [Suspect]
     Active Substance: POMALIDOMIDE
     Route: 048
     Dates: start: 201606
  2. CARFILZOMIB [Concomitant]
     Active Substance: CARFILZOMIB
     Route: 041
     Dates: start: 20160707, end: 20160812
  3. CARFILZOMIB [Concomitant]
     Active Substance: CARFILZOMIB
     Route: 041
     Dates: start: 20160421, end: 20160520
  4. CARFILZOMIB [Concomitant]
     Active Substance: CARFILZOMIB
     Indication: PRODUCT USED FOR UNKNOWN INDICATION
     Route: 041
     Dates: start: 20160407, end: 20160408
  5. CYANOCOBALAMIN. [Concomitant]
     Active Substance: CYANOCOBALAMIN
     Route: 030
     Dates: start: 20160804
  6. ZOMETA [Concomitant]
     Active Substance: ZOLEDRONIC ACID
     Route: 041
     Dates: start: 20160414
  7. POMALYST [Suspect]
     Active Substance: POMALIDOMIDE
     Indication: PLASMA CELL MYELOMA
     Route: 048
     Dates: start: 201604, end: 20160616
  8. DECADRON [Concomitant]
     Active Substance: DEXAMETHASONE
     Route: 041
     Dates: start: 20160414
  9. DECADRON [Concomitant]
     Active Substance: DEXAMETHASONE
     Route: 041
     Dates: start: 20160506, end: 20160513
  10. DECADRON [Concomitant]
     Active Substance: DEXAMETHASONE
     Indication: PRODUCT USED FOR UNKNOWN INDICATION
     Route: 041
     Dates: start: 20160407
  11. DECADRON [Concomitant]
     Active Substance: DEXAMETHASONE
     Route: 041
     Dates: start: 20160519
  12. CYANOCOBALAMIN. [Concomitant]
     Active Substance: CYANOCOBALAMIN
     Indication: PRODUCT USED FOR UNKNOWN INDICATION
     Route: 030
     Dates: start: 20160317, end: 20160407
  13. DECADRON [Concomitant]
     Active Substance: DEXAMETHASONE
     Route: 041
     Dates: start: 20160422
  14. DECADRON [Concomitant]
     Active Substance: DEXAMETHASONE
     Route: 041
     Dates: start: 20160520
  15. ZOMETA [Concomitant]
     Active Substance: ZOLEDRONIC ACID
     Indication: PRODUCT USED FOR UNKNOWN INDICATION
     Dosage: 16 MILLIGRAM/KILOGRAM
     Route: 041
     Dates: start: 20160310, end: 20160407
  16. CARFILZOMIB [Concomitant]
     Active Substance: CARFILZOMIB
     Route: 041
     Dates: start: 20160414, end: 20160415
  17. DARATUMUMAB [Concomitant]
     Active Substance: DARATUMUMAB
     Indication: PRODUCT USED FOR UNKNOWN INDICATION
     Route: 041
     Dates: start: 20160225, end: 20160331
  18. CYANOCOBALAMIN. [Concomitant]
     Active Substance: CYANOCOBALAMIN
     Route: 030
     Dates: start: 20160512

REACTIONS (2)
  - Fatigue [Recovered/Resolved]
  - Nausea [Recovered/Resolved]

NARRATIVE: CASE EVENT DATE: 2016
